FAERS Safety Report 17106088 (Version 2)
Quarter: 2019Q4

REPORT INFORMATION
  Report Type: Report from Study
  Country: CZ (occurrence: CZ)
  Receive Date: 20191203
  Receipt Date: 20191212
  Transmission Date: 20200122
  Serious: Yes (Life-Threatening, Other)
  Sender: FDA-Public Use
  Company Number: CZ-PFIZER INC-2019519431

PATIENT
  Age: 29 Year
  Sex: Female
  Weight: 65 kg

DRUGS (5)
  1. AZATHIOPRIN [Suspect]
     Active Substance: AZATHIOPRINE
     Dosage: 100 MG, 1X/DAY
     Dates: start: 2014, end: 201712
  2. MEDROL [Suspect]
     Active Substance: METHYLPREDNISOLONE
     Dosage: 32 MG, 1X/DAY IN THE MORNING
     Dates: start: 2014, end: 201512
  3. PREDNISON [Suspect]
     Active Substance: PREDNISONE
     Dosage: 20 MG, 1X/DAY, IN THE MORNING
     Dates: start: 2014, end: 201512
  4. HUMIRA [Suspect]
     Active Substance: ADALIMUMAB
     Dosage: 40 GBQ, 1X EVERY 2 WEEKS
     Route: 058
     Dates: start: 20150909, end: 20181109
  5. IMURAN [Suspect]
     Active Substance: AZATHIOPRINE
     Dosage: 50MG, 2X/DAY, MORNING AND EVENING
     Dates: start: 2014, end: 201712

REACTIONS (2)
  - Papilloma viral infection [Unknown]
  - Breast cancer female [Recovering/Resolving]

NARRATIVE: CASE EVENT DATE: 20181016
